FAERS Safety Report 4439098-3 (Version None)
Quarter: 2004Q3

REPORT INFORMATION
  Report Type: 
  Country: None (occurrence: None)
  Receive Date: 20040901
  Receipt Date: 20031121
  Transmission Date: 20050211
  Serious: Yes (Life-Threatening, Hospitalization, Other)
  Sender: FDA-Public Use
  Company Number: DE-BRISTOL-MYERS SQUIBB COMPANY-12440756

PATIENT
  Age: 60 Year
  Sex: Female
  Weight: 59 kg

DRUGS (2)
  1. TAXOL [Suspect]
     Indication: OVARIAN CANCER
     Dosage: 1ST DOSE ON 21-AUG-2003
     Dates: start: 20031002, end: 20031002
  2. CARBOPLATIN [Suspect]
     Indication: OVARIAN CANCER
     Dosage: 1ST DOSE ON 21-AUG-2003
     Dates: start: 20031002, end: 20031002

REACTIONS (5)
  - ACUTE PRERENAL FAILURE [None]
  - ANAEMIA [None]
  - DEHYDRATION [None]
  - THROMBOCYTOPENIA [None]
  - URINARY TRACT INFECTION [None]
